FAERS Safety Report 23089876 (Version 2)
Quarter: 2023Q4

REPORT INFORMATION
  Report Type: Report from Study
  Country: FR (occurrence: FR)
  Receive Date: 20231020
  Receipt Date: 20231108
  Transmission Date: 20240110
  Serious: Yes (Hospitalization)
  Sender: FDA-Public Use
  Company Number: FR-SA-SAC20231017000427

PATIENT
  Sex: Male

DRUGS (10)
  1. ISATUXIMAB [Suspect]
     Active Substance: ISATUXIMAB
     Indication: Minimal residual disease
     Dosage: 770 MG, QM
     Route: 042
     Dates: start: 20211216, end: 20211216
  2. ISATUXIMAB [Suspect]
     Active Substance: ISATUXIMAB
     Dosage: 770 MG, QM
     Route: 042
     Dates: start: 20231004, end: 20231004
  3. CARFILZOMIB [Suspect]
     Active Substance: CARFILZOMIB
     Indication: Minimal residual disease
     Dosage: 107 MG, Q3M
     Route: 042
     Dates: start: 20211216, end: 20211216
  4. CARFILZOMIB [Suspect]
     Active Substance: CARFILZOMIB
     Dosage: 107 MG, Q3M
     Route: 042
     Dates: start: 20220609, end: 20220609
  5. LENALIDOMIDE [Suspect]
     Active Substance: LENALIDOMIDE
     Indication: Minimal residual disease
     Dosage: 25 MG, QD
     Route: 048
     Dates: start: 20211216, end: 20211216
  6. LENALIDOMIDE [Suspect]
     Active Substance: LENALIDOMIDE
     Dosage: 25 MG, QD
     Route: 048
     Dates: start: 20220616, end: 20220616
  7. DEXAMETHASONE [Suspect]
     Active Substance: DEXAMETHASONE
     Indication: Minimal residual disease
     Dosage: UNK
     Route: 048
     Dates: start: 20211216, end: 20211216
  8. DEXAMETHASONE [Suspect]
     Active Substance: DEXAMETHASONE
     Dosage: UNK
     Route: 048
     Dates: start: 20231004, end: 20231004
  9. IBERDOMIDE [Suspect]
     Active Substance: IBERDOMIDE
     Indication: Minimal residual disease
     Dosage: 1 MG
     Route: 048
     Dates: start: 20230110, end: 20230110
  10. IBERDOMIDE [Suspect]
     Active Substance: IBERDOMIDE
     Dosage: 1 MG
     Route: 048
     Dates: start: 20231013, end: 20231013

REACTIONS (1)
  - Lung disorder [Not Recovered/Not Resolved]

NARRATIVE: CASE EVENT DATE: 20231011
